FAERS Safety Report 8158687-6 (Version None)
Quarter: 2012Q1

REPORT INFORMATION
  Report Type: 
  Country: None (occurrence: None)
  Receive Date: 20120223
  Receipt Date: 20120210
  Transmission Date: 20120608
  Serious: No
  Sender: FDA-Public Use
  Company Number: US-ELI_LILLY_AND_COMPANY-US201201009171

PATIENT
  Sex: Female

DRUGS (1)
  1. FORTEO [Suspect]
     Indication: OSTEOPOROSIS
     Dosage: 20 UG, QD
     Route: 065
     Dates: start: 20120119

REACTIONS (9)
  - PAIN [None]
  - NECK PAIN [None]
  - MUSCULOSKELETAL PAIN [None]
  - NERVE INJURY [None]
  - HYPOAESTHESIA [None]
  - FEELING ABNORMAL [None]
  - HEADACHE [None]
  - INJECTION SITE PAIN [None]
  - MUSCLE INJURY [None]
